FAERS Safety Report 22127224 (Version 1)
Quarter: 2023Q1

REPORT INFORMATION
  Report Type: Spontaneous
  Country: US (occurrence: US)
  Receive Date: 20230322
  Receipt Date: 20230322
  Transmission Date: 20230417
  Serious: Yes (Death, Other)
  Sender: FDA-Public Use
  Company Number: US-MALLINCKRODT-MNK202300346

PATIENT
  Age: 90 Year
  Sex: Female

DRUGS (1)
  1. CORTICOTROPIN [Suspect]
     Active Substance: CORTICOTROPIN
     Indication: Punctate keratitis
     Dosage: 80 UNITS (1ML) ON MONDAY AND THURSDAY MORNINGS EACH WEEK
     Route: 058
     Dates: start: 202212

REACTIONS (1)
  - Death [Fatal]
